FAERS Safety Report 12882656 (Version 3)
Quarter: 2016Q4

REPORT INFORMATION
  Report Type: Spontaneous
  Country: US (occurrence: US)
  Receive Date: 20161025
  Receipt Date: 20161216
  Transmission Date: 20170207
  Serious: No
  Sender: FDA-Public Use
  Company Number: US-PFIZER INC-2016494495

PATIENT
  Sex: Female

DRUGS (3)
  1. FLECTOR [Suspect]
     Active Substance: DICLOFENAC EPOLAMINE
     Indication: BACK PAIN
  2. FENTANYL. [Concomitant]
     Active Substance: FENTANYL
     Indication: CANCER PAIN
  3. FLECTOR [Suspect]
     Active Substance: DICLOFENAC EPOLAMINE
     Indication: LIGAMENT PAIN
     Dosage: 1.3%
     Dates: start: 20161007

REACTIONS (1)
  - Drug ineffective [Unknown]
